FAERS Safety Report 18310856 (Version 2)
Quarter: 2020Q4

REPORT INFORMATION
  Report Type: Report from Study
  Country: US (occurrence: US)
  Receive Date: 20200925
  Receipt Date: 20201103
  Transmission Date: 20210113
  Serious: No
  Sender: FDA-Public Use
  Company Number: NVSC2020US261235

PATIENT
  Sex: Female

DRUGS (2)
  1. TASIGNA [Suspect]
     Active Substance: NILOTINIB
     Indication: PRODUCT USED FOR UNKNOWN INDICATION
     Route: 048
  2. TASIGNA [Suspect]
     Active Substance: NILOTINIB
     Route: 048

REACTIONS (4)
  - Quality of life decreased [Unknown]
  - Nausea [Unknown]
  - Illness [Unknown]
  - Asthenia [Unknown]
